FAERS Safety Report 20547630 (Version 2)
Quarter: 2022Q1

REPORT INFORMATION
  Report Type: Spontaneous
  Country: TR (occurrence: TR)
  Receive Date: 20220303
  Receipt Date: 20220317
  Transmission Date: 20220423
  Serious: Yes (Hospitalization)
  Sender: FDA-Public Use
  Company Number: TR-TEVA-2022-TR-2011592

PATIENT
  Age: 57 Year
  Sex: Male

DRUGS (1)
  1. CAPECITABINE [Suspect]
     Active Substance: CAPECITABINE
     Indication: Rectal cancer
     Dosage: 2000 MG/M2 DAILY; TWICE A DAY FOR 14 DAYS FOLLOWED BY A 7 DAY REST PERIOD. THERAPY CYCLES WERE REPEA
     Route: 048

REACTIONS (1)
  - Hepatitis B reactivation [Recovered/Resolved]
